FAERS Safety Report 18062689 (Version 1)
Quarter: 2020Q3

REPORT INFORMATION
  Report Type: Spontaneous
  Country: DE (occurrence: DE)
  Receive Date: 20200723
  Receipt Date: 20200723
  Transmission Date: 20201103
  Serious: Yes (Hospitalization, Other)
  Sender: FDA-Public Use
  Company Number: NVSC2020DE201117

PATIENT
  Age: 78 Year
  Sex: Male
  Weight: 123 kg

DRUGS (4)
  1. VALSARTAN. [Suspect]
     Active Substance: VALSARTAN
     Indication: PRODUCT USED FOR UNKNOWN INDICATION
     Dosage: UNK (TAD PHARMA)
     Route: 065
  2. VALSARTAN DURA [Suspect]
     Active Substance: VALSARTAN
     Dosage: 40 MG, QD 1/2 TABLET
     Route: 065
  3. VALSARTAN DURA [Suspect]
     Active Substance: VALSARTAN
     Indication: PRODUCT USED FOR UNKNOWN INDICATION
     Dosage: 80 MG, QD
     Route: 065
     Dates: start: 20150710
  4. VALSARTAN DURA [Suspect]
     Active Substance: VALSARTAN
     Dosage: 20 MG, QD 1/4 TABLET
     Route: 065

REACTIONS (3)
  - Product use issue [Unknown]
  - Wrong technique in product usage process [Unknown]
  - Bladder cancer [Recovered/Resolved]

NARRATIVE: CASE EVENT DATE: 20190426
